FAERS Safety Report 21771612 (Version 1)
Quarter: 2022Q4

REPORT INFORMATION
  Report Type: Report from Study
  Country: CH (occurrence: CH)
  Receive Date: 20221223
  Receipt Date: 20221223
  Transmission Date: 20230113
  Serious: Yes (Other)
  Sender: FDA-Public Use
  Company Number: CH-NEBO-PC009609

PATIENT
  Age: 37 Year
  Sex: Female
  Weight: 73 kg

DRUGS (4)
  1. IRON ISOMALTOSIDE 1000 [Suspect]
     Active Substance: IRON ISOMALTOSIDE 1000
     Indication: Iron deficiency
     Dosage: DILUTED IN 250 ML NACL
     Route: 050
     Dates: start: 20211104, end: 20211104
  2. Iteroel [Concomitant]
     Indication: Vomiting
  3. ELEVIT [MINERALS NOS;VITAMINS NOS] [Concomitant]
     Indication: Product used for unknown indication
  4. CO AMOXI MEPHA [Concomitant]
     Indication: Product used for unknown indication

REACTIONS (4)
  - Maternal exposure during pregnancy [Recovered/Resolved]
  - Meconium in amniotic fluid [Unknown]
  - Gestational diabetes [Unknown]
  - Normal newborn [Recovered/Resolved]

NARRATIVE: CASE EVENT DATE: 20211104
